FAERS Safety Report 13644238 (Version 2)
Quarter: 2017Q3

REPORT INFORMATION
  Report Type: Spontaneous
  Country: US (occurrence: US)
  Receive Date: 20170612
  Receipt Date: 20170710
  Transmission Date: 20171127
  Serious: No
  Sender: FDA-Public Use
  Company Number: US-BAUSCH-BL-2017-018279

PATIENT
  Age: 77 Year
  Sex: Female

DRUGS (1)
  1. SOOTHE XP [Suspect]
     Active Substance: LIGHT MINERAL OIL\MINERAL OIL
     Indication: HYPERSENSITIVITY
     Dosage: AS NEEDED INTERMITTENTLY
     Route: 047

REACTIONS (2)
  - Injury [Recovered/Resolved]
  - Product closure removal difficult [Unknown]
